FAERS Safety Report 10082274 (Version 4)
Quarter: 2014Q2

REPORT INFORMATION
  Report Type: Spontaneous
  Country: US (occurrence: US)
  Receive Date: 20140416
  Receipt Date: 20140604
  Transmission Date: 20141212
  Serious: Yes (Death)
  Sender: FDA-Public Use
  Company Number: PHEH2014US007157

PATIENT
  Sex: Female

DRUGS (1)
  1. AFINITOR [Suspect]
     Dosage: 10 MG
     Route: 048

REACTIONS (4)
  - Death [Fatal]
  - Malignant neoplasm progression [Unknown]
  - Asthenia [Unknown]
  - Drug ineffective [Unknown]
